FAERS Safety Report 10518600 (Version 1)
Quarter: 2014Q4

REPORT INFORMATION
  Report Type: Spontaneous
  Country: CA (occurrence: CA)
  Receive Date: 20141015
  Receipt Date: 20141015
  Transmission Date: 20150528
  Serious: Yes (Other)
  Sender: FDA-Public Use
  Company Number: CA-LEO PHARMA-224672

PATIENT
  Age: 61 Year
  Sex: Male

DRUGS (1)
  1. PICATO [Suspect]
     Active Substance: INGENOL MEBUTATE
     Indication: ACTINIC KERATOSIS
     Dates: start: 20130912, end: 20130913

REACTIONS (10)
  - Application site inflammation [Recovered/Resolved]
  - Herpes zoster [Not Recovered/Not Resolved]
  - Application site haemorrhage [Recovered/Resolved]
  - Post herpetic neuralgia [Not Recovered/Not Resolved]
  - Application site erythema [Recovered/Resolved]
  - Application site dermatitis [Recovered/Resolved]
  - Application site pain [Recovered/Resolved]
  - Application site erosion [Recovered/Resolved]
  - Application site vesicles [Recovered/Resolved]
  - Application site scab [Recovered/Resolved]
